FAERS Safety Report 18689471 (Version 9)
Quarter: 2021Q2

REPORT INFORMATION
  Report Type: Report from Study
  Country: US (occurrence: US)
  Receive Date: 20201231
  Receipt Date: 20210624
  Transmission Date: 20210717
  Serious: Yes (Hospitalization)
  Sender: FDA-Public Use
  Company Number: US-TAKEDA-US202026915

PATIENT
  Sex: Female
  Weight: 86 kg

DRUGS (29)
  1. MESTINON [Concomitant]
     Active Substance: PYRIDOSTIGMINE BROMIDE
  2. ICATIBANT [Suspect]
     Active Substance: ICATIBANT ACETATE
     Indication: IMMUNE SYSTEM DISORDER
     Dosage: 30 MILLIGRAM, AS NEEDED
     Route: 058
     Dates: start: 20200807
  3. EMGALITY [Concomitant]
     Active Substance: GALCANEZUMAB-GNLM
  4. CARVEDILOL. [Concomitant]
     Active Substance: CARVEDILOL
  5. VALTREX [Concomitant]
     Active Substance: VALACYCLOVIR HYDROCHLORIDE
  6. ALBUTEROL [SALBUTAMOL] [Concomitant]
     Active Substance: ALBUTEROL
  7. LEVETIRACETAM. [Concomitant]
     Active Substance: LEVETIRACETAM
  8. PLAQUENIL [Concomitant]
     Active Substance: HYDROXYCHLOROQUINE SULFATE
  9. HEPARIN [Concomitant]
     Active Substance: HEPARIN SODIUM
  10. BERINERT [Concomitant]
     Active Substance: HUMAN C1-ESTERASE INHIBITOR
  11. ICATIBANT [Suspect]
     Active Substance: ICATIBANT ACETATE
     Indication: IMMUNE SYSTEM DISORDER
     Dosage: 30 MILLIGRAM, AS NEEDED
     Route: 058
     Dates: start: 20200807
  12. XARELTO [Concomitant]
     Active Substance: RIVAROXABAN
  13. OCTAGAM IMMUNE GLOBULIN (HUMAN) [Concomitant]
     Active Substance: HUMAN IMMUNOGLOBULIN G
  14. LEVOTHYROXINE. [Concomitant]
     Active Substance: LEVOTHYROXINE
  15. POTASSIUM [Concomitant]
     Active Substance: POTASSIUM
  16. KETOTIFEN [Concomitant]
     Active Substance: KETOTIFEN
  17. EPINEPHRINE. [Concomitant]
     Active Substance: EPINEPHRINE
  18. BUDESONIDE. [Concomitant]
     Active Substance: BUDESONIDE
  19. BACLOFEN. [Concomitant]
     Active Substance: BACLOFEN
  20. VITAMIN D3 [Concomitant]
     Active Substance: CHOLECALCIFEROL
  21. CROMOLYN [CROMOGLICATE SODIUM] [Concomitant]
     Active Substance: CROMOLYN SODIUM
  22. CYTOMEL [Concomitant]
     Active Substance: LIOTHYRONINE SODIUM
  23. SODIUM CHLORIDE. [Concomitant]
     Active Substance: SODIUM CHLORIDE
  24. AMBIEN [Concomitant]
     Active Substance: ZOLPIDEM TARTRATE
  25. RESTASIS [Concomitant]
     Active Substance: CYCLOSPORINE
  26. CEVIMELINE. [Concomitant]
     Active Substance: CEVIMELINE
  27. OXYGEN. [Concomitant]
     Active Substance: OXYGEN
  28. METFORMIN [Concomitant]
     Active Substance: METFORMIN HYDROCHLORIDE
  29. MUPIROCIN. [Concomitant]
     Active Substance: MUPIROCIN

REACTIONS (8)
  - Condition aggravated [Unknown]
  - Brain operation [Unknown]
  - Hereditary angioedema [Unknown]
  - Weight decreased [Unknown]
  - Malaise [Unknown]
  - Surgery [Unknown]
  - Postural orthostatic tachycardia syndrome [Unknown]
  - Erythema [Recovered/Resolved]
